FAERS Safety Report 5367452-4 (Version None)
Quarter: 2007Q2

REPORT INFORMATION
  Report Type: 
  Country: None (occurrence: None)
  Receive Date: 20070622
  Receipt Date: 20061024
  Transmission Date: 20071010
  Serious: No
  Sender: FDA-Public Use
  Company Number: US-ASTRAZENECA-2006UW20517

PATIENT
  Age: 72 Year
  Sex: Female
  Weight: 59.9 kg

DRUGS (9)
  1. PULMICORT [Suspect]
     Indication: CHRONIC OBSTRUCTIVE PULMONARY DISEASE
     Route: 055
     Dates: start: 20050801
  2. WELLBUTRIN [Concomitant]
  3. HYDROCHLOROTHIAZIDE [Concomitant]
  4. LEVOTHYROXINE SODIUM [Concomitant]
  5. COREG [Concomitant]
  6. ZOCOR [Concomitant]
  7. WARFARIN [Concomitant]
  8. FEMARA [Concomitant]
  9. DIOVAN [Concomitant]

REACTIONS (1)
  - DYSPNOEA [None]
